FAERS Safety Report 19419983 (Version 1)
Quarter: 2021Q2

REPORT INFORMATION
  Report Type: Spontaneous
  Country: CA (occurrence: CA)
  Receive Date: 20210616
  Receipt Date: 20210616
  Transmission Date: 20210717
  Serious: Yes (Other)
  Sender: FDA-Public Use
  Company Number: CA-AUROBINDO-AUR-APL-2021-024441

PATIENT
  Age: 74 Year
  Sex: Female

DRUGS (2)
  1. LAX?A?DAY [Suspect]
     Active Substance: POLYETHYLENE GLYCOL 3350
     Indication: CONSTIPATION
     Dosage: 17 GRAM, ONCE A DAY
     Route: 048
  2. METFORMIN TABLET [Suspect]
     Active Substance: METFORMIN HYDROCHLORIDE
     Indication: PRODUCT USED FOR UNKNOWN INDICATION
     Dosage: 0.5 DOSAGE FORM, TWO TIMES A DAY
     Route: 065

REACTIONS (5)
  - Nausea [Unknown]
  - Type 2 diabetes mellitus [Unknown]
  - Vision blurred [Unknown]
  - Asthenia [Unknown]
  - Head discomfort [Unknown]
